FAERS Safety Report 4514950-9 (Version None)
Quarter: 2004Q4

REPORT INFORMATION
  Report Type: 
  Country: None (occurrence: None)
  Receive Date: 20041201
  Receipt Date: 20040316
  Transmission Date: 20050328
  Serious: Yes (Death, Hospitalization, Other)
  Sender: FDA-Public Use
  Company Number: PHRM2004FR01234

PATIENT
  Age: 73 Year
  Sex: Male
  Weight: 62 kg

DRUGS (1)
  1. COTAREG [Suspect]
     Indication: HYPERTENSION

REACTIONS (10)
  - DILATATION ATRIAL [None]
  - ECZEMA [None]
  - HYPERKERATOSIS PALMARIS AND PLANTARIS [None]
  - LIPOMA [None]
  - LYMPHOPENIA [None]
  - MALIGNANT NEOPLASM PROGRESSION [None]
  - NAIL DISORDER [None]
  - PHOTOSENSITIVITY REACTION [None]
  - PRURITUS [None]
  - PULSE ABSENT [None]
